FAERS Safety Report 16703014 (Version 1)
Quarter: 2019Q3

REPORT INFORMATION
  Report Type: Spontaneous
  Country: AU (occurrence: AU)
  Receive Date: 20190814
  Receipt Date: 20190814
  Transmission Date: 20191004
  Serious: Yes (Other)
  Sender: FDA-Public Use
  Company Number: AU-ROCHE-2368160

PATIENT
  Age: 35 Year
  Sex: Female

DRUGS (4)
  1. SECUKINUMAB. [Concomitant]
     Active Substance: SECUKINUMAB
  2. FINGOLIMOD. [Concomitant]
     Active Substance: FINGOLIMOD
  3. LEFLUNOMIDE. [Concomitant]
     Active Substance: LEFLUNOMIDE
  4. RITUXIMAB. [Suspect]
     Active Substance: RITUXIMAB
     Indication: MULTIPLE SCLEROSIS
     Route: 065
     Dates: start: 20121101

REACTIONS (10)
  - Claustrophobia [Unknown]
  - Off label use [Unknown]
  - Vertigo positional [Unknown]
  - Multiple sclerosis [Unknown]
  - Synovitis [Unknown]
  - JC polyomavirus test positive [Unknown]
  - Optic neuritis [Unknown]
  - Crohn^s disease [Unknown]
  - Arthritis [Unknown]
  - Intentional product use issue [Unknown]
